FAERS Safety Report 9843328 (Version 1)
Quarter: 2013Q4

REPORT INFORMATION
  Report Type: Spontaneous
  Country: US (occurrence: None)
  Receive Date: 20131223
  Receipt Date: 20131223
  Transmission Date: 20140711
  Serious: Yes (Other)
  Sender: FDA-Public Use
  Company Number: 218933LEO

PATIENT
  Age: 87 Year
  Sex: Male

DRUGS (1)
  1. PICATO [Suspect]
     Indication: PRECANCEROUS SKIN LESION
     Route: 061
     Dates: start: 20120910, end: 20120912

REACTIONS (5)
  - Accidental exposure to product [None]
  - Paraesthesia oral [None]
  - Paraesthesia oral [None]
  - Paraesthesia oral [None]
  - Dizziness [None]
